FAERS Safety Report 21082116 (Version 1)
Quarter: 2022Q3

REPORT INFORMATION
  Report Type: Spontaneous
  Country: FR (occurrence: FR)
  Receive Date: 20220714
  Receipt Date: 20220714
  Transmission Date: 20221026
  Serious: Yes (Other)
  Sender: FDA-Public Use
  Company Number: FR-PFIZER INC-PV202200016834

PATIENT
  Age: 23 Month
  Sex: Female

DRUGS (3)
  1. SIROLIMUS [Suspect]
     Active Substance: SIROLIMUS
     Indication: Neoplasm
     Dosage: 0.1 MG/KG (INITIAL DOSE)
  2. SIROLIMUS [Suspect]
     Active Substance: SIROLIMUS
     Indication: Haemangioma-thrombocytopenia syndrome
     Dosage: 0.0083 MG/KG (DOSE BEFORE 1ST DISCONTINUATION)
  3. SIROLIMUS [Suspect]
     Active Substance: SIROLIMUS
     Dosage: 0.005 MG/KG (OVERALL DOSE)

REACTIONS (7)
  - Cystitis viral [Unknown]
  - Mouth ulceration [Unknown]
  - Ear infection [Unknown]
  - Chalazion [Unknown]
  - Off label use [Unknown]
  - Off label use [Unknown]
  - Drug effective for unapproved indication [Unknown]
